FAERS Safety Report 5292931-8 (Version None)
Quarter: 2007Q2

REPORT INFORMATION
  Report Type: 
  Country: None (occurrence: None)
  Receive Date: 20070411
  Receipt Date: 20070329
  Transmission Date: 20071010
  Serious: Yes (Hospitalization)
  Sender: FDA-Public Use
  Company Number: PHBS2007JP02409

PATIENT
  Age: 70 Year
  Sex: Male

DRUGS (10)
  1. DIOVAN [Suspect]
     Indication: HYPERTENSION
     Dosage: 160 MG/DAY
     Route: 048
     Dates: start: 20061101, end: 20061117
  2. ASPIRIN [Concomitant]
     Indication: CEREBRAL INFARCTION
     Dosage: 100 MG, UNK
     Route: 048
     Dates: start: 20061117
  3. PLETAL [Concomitant]
     Indication: ARTERIAL OCCLUSIVE DISEASE
     Dosage: 50 MG, UNK
     Route: 048
     Dates: start: 20061101
  4. PLETAL [Concomitant]
     Dosage: 100 MG, UNK
     Route: 048
  5. ATELEC [Concomitant]
     Indication: HYPERTENSION
     Dosage: 20 MG, UNK
     Route: 048
     Dates: start: 20061101
  6. LENDORMIN [Concomitant]
     Indication: INSOMNIA
     Dosage: 0.25 MG, UNK
     Route: 048
     Dates: start: 20061101
  7. LAC B [Concomitant]
     Indication: GASTRITIS
     Dosage: 3 G, UNK
     Route: 048
     Dates: start: 20061101
  8. PHELLOBERIN A [Concomitant]
     Indication: GASTRITIS
     Dosage: 3 DF, UNK
     Route: 048
     Dates: start: 20061101
  9. INTEBAN [Concomitant]
     Dates: start: 20061101
  10. MECOBALAMIN [Concomitant]
     Indication: NERVE INJURY
     Dosage: 1500 UG, UNK
     Route: 048
     Dates: start: 20061106

REACTIONS (11)
  - APHASIA [None]
  - CAROTID ARTERY STENOSIS [None]
  - DIZZINESS [None]
  - DYSLALIA [None]
  - EYELID PTOSIS [None]
  - HAEMOGLOBIN DECREASED [None]
  - HYPOAESTHESIA [None]
  - MONOPLEGIA [None]
  - PARALYSIS [None]
  - TRANSIENT ISCHAEMIC ATTACK [None]
  - VISUAL DISTURBANCE [None]
